FAERS Safety Report 5417332-0 (Version None)
Quarter: 2007Q3

REPORT INFORMATION
  Report Type: 
  Country: None (occurrence: None)
  Receive Date: 20070718
  Receipt Date: 20060628
  Transmission Date: 20080115
  Serious: Yes (Hospitalization, Other)
  Sender: FDA-Public Use
  Company Number: 2005142335

PATIENT
  Age: 69 Year
  Sex: Female
  Weight: 64.4108 kg

DRUGS (2)
  1. CELEBREX [Suspect]
     Indication: ARTHRITIS
     Dates: start: 20010605
  2. VIOXX [Suspect]
     Indication: ARTHRALGIA
     Dosage: (25 MG, )
     Dates: start: 20010621

REACTIONS (1)
  - MYOCARDIAL INFARCTION [None]
